FAERS Safety Report 5483824-1 (Version None)
Quarter: 2007Q4

REPORT INFORMATION
  Report Type: 
  Country: None (occurrence: None)
  Receive Date: 20071009
  Receipt Date: 20071009
  Transmission Date: 20080405
  Serious: Yes (Hospitalization)
  Sender: FDA-Public Use
  Company Number: None

PATIENT
  Sex: Female
  Weight: 64.1 kg

DRUGS (5)
  1. QUADRAMET [Suspect]
     Dosage: 69.5 MG
  2. ZOMETA [Suspect]
     Dosage: 4 MG
  3. CALCIUM [Concomitant]
  4. VITAMIN D [Concomitant]
  5. LEVOTHYROXINE SODIUM [Concomitant]

REACTIONS (1)
  - SYNCOPE [None]
